FAERS Safety Report 24254693 (Version 1)
Quarter: 2024Q3

REPORT INFORMATION
  Report Type: Spontaneous
  Country: FI (occurrence: FI)
  Receive Date: 20240827
  Receipt Date: 20240827
  Transmission Date: 20241017
  Serious: Yes (Death, Other)
  Sender: AMGEN
  Company Number: FI-AMGEN-FINSP2024168885

PATIENT

DRUGS (7)
  1. FILGRASTIM [Suspect]
     Active Substance: FILGRASTIM
     Indication: Prophylaxis
     Dosage: UNK, QD, APPROXIMATELY 7 DAYS (AT THE EARLIEST 24H AFTER LAST CHEMO INFUSION)
     Route: 065
  2. PEGFILGRASTIM [Suspect]
     Active Substance: PEGFILGRASTIM
     Indication: Prophylaxis
     Dosage: UNK, AFTER CHEMO (AT THE EARLIEST 24H AFTER LAST CHEMO INFUSION)
     Route: 065
  3. RITUXIMAB [Suspect]
     Active Substance: RITUXIMAB
     Indication: Lymphoma
     Dosage: UNK
     Route: 065
  4. CYCLOPHOSPHAMIDE [Concomitant]
     Active Substance: CYCLOPHOSPHAMIDE
     Indication: Lymphoma
  5. PREDNISONE [Concomitant]
     Active Substance: PREDNISONE
     Indication: Lymphoma
  6. VINCRISTINE [Concomitant]
     Active Substance: VINCRISTINE
     Indication: Lymphoma
  7. DOXORUBICIN [Concomitant]
     Active Substance: DOXORUBICIN
     Indication: Lymphoma

REACTIONS (2)
  - Acute respiratory distress syndrome [Fatal]
  - Pneumonitis [Unknown]
